FAERS Safety Report 7590094-7 (Version None)
Quarter: 2011Q3

REPORT INFORMATION
  Report Type: 
  Country: None (occurrence: None)
  Receive Date: 20110705
  Receipt Date: 20110627
  Transmission Date: 20111222
  Serious: Yes (Other)
  Sender: FDA-Public Use
  Company Number: B0727407A

PATIENT
  Sex: Female

DRUGS (6)
  1. PREDNISOLONE [Concomitant]
     Indication: IDIOPATHIC THROMBOCYTOPENIC PURPURA
     Dosage: 10MG PER DAY
     Route: 048
  2. IMURAN [Concomitant]
     Indication: IDIOPATHIC THROMBOCYTOPENIC PURPURA
     Dosage: 100MG PER DAY
     Route: 048
  3. PROMACTA [Suspect]
     Indication: IDIOPATHIC THROMBOCYTOPENIC PURPURA
     Dosage: 25MG PER DAY
     Route: 048
     Dates: start: 20110428, end: 20110609
  4. NEUER [Concomitant]
     Dosage: 3G PER DAY
     Route: 048
  5. UNKNOWN MEDICATION [Concomitant]
     Route: 065
  6. ONEALFA [Concomitant]
     Dosage: .5MCG PER DAY
     Route: 048

REACTIONS (1)
  - LIVER FUNCTION TEST ABNORMAL [None]
